FAERS Safety Report 4719708-3 (Version None)
Quarter: 2005Q3

REPORT INFORMATION
  Report Type: 
  Country: None (occurrence: None)
  Receive Date: 20050721
  Receipt Date: 20040624
  Transmission Date: 20060218
  Serious: No
  Sender: FDA-Public Use
  Company Number: US-GLAXOSMITHKLINE-A0515912A

PATIENT
  Age: 82 Year
  Sex: Male

DRUGS (5)
  1. AVANDIA [Suspect]
     Dosage: 2MG PER DAY
     Route: 048
     Dates: start: 20040101
  2. METFORMIN [Concomitant]
  3. MONOPRIL [Concomitant]
  4. SYNTHROID [Concomitant]
  5. GEMFIBROZIL [Concomitant]

REACTIONS (1)
  - WEIGHT INCREASED [None]
